FAERS Safety Report 10377519 (Version 1)
Quarter: 2014Q1

REPORT INFORMATION
  Report Type: Spontaneous
  Country: US (occurrence: None)
  Receive Date: 20140306
  Receipt Date: 20140306
  Transmission Date: 20141002
  Serious: Yes (Other)
  Sender: FDA-Public Use
  Company Number: 163-21880-13014008

PATIENT
  Age: 80 Year
  Sex: Female
  Weight: 67.13 kg

DRUGS (12)
  1. REVLIMID (LENALIDOMIDE) (CAPSULES) [Suspect]
     Indication: PLASMA CELL MYELOMA
     Route: 048
     Dates: start: 20120801
  2. CARFILZOMIB (CARFILZOMIB) (UNKNOWN) [Suspect]
     Indication: PRODUCT USED FOR UNKNOWN INDICATION
  3. ASA (ACETYLSALICYLIC ACID) (TABLETS) [Concomitant]
  4. CALCIUM 600 + VITAMIN D (CALCIUM D3 ^STADA^) (UNKNOWN) [Concomitant]
  5. DEXAMETHASONE (DEXAMETHASONE) (UNKNOWN) [Concomitant]
  6. FISH OIL (FISH OIL) (UNKNOWN) [Concomitant]
  7. FOLIC ACID (FOLIC ACID) (UNKNOWN) [Concomitant]
  8. GABAPENTIN (GABAPENTIN) (UNKNOWN) (GABAPENTIN) [Concomitant]
  9. LASIX (FUROSEMIDE) (TABLETS) [Concomitant]
  10. PROCRIT (ERYTHROPOIETIN) [Concomitant]
  11. VALTREX (VALACICLOVIR HYDROCHLORIDE) (TABLETS) [Concomitant]
  12. VELCADE (BORTEZOMIB) (UNKNOWN) [Concomitant]

REACTIONS (1)
  - Blood pressure increased [None]
